FAERS Safety Report 7136066-8 (Version None)
Quarter: 2010Q4

REPORT INFORMATION
  Report Type: 
  Country: None (occurrence: None)
  Receive Date: 20101204
  Receipt Date: 20101123
  Transmission Date: 20110411
  Serious: Yes (Other)
  Sender: FDA-Public Use
  Company Number: US-BAYER-201042137NA

PATIENT

DRUGS (4)
  1. YAZ [Suspect]
     Route: 048
     Dates: start: 20070822, end: 20071001
  2. YAZ [Suspect]
     Route: 048
     Dates: start: 20030818, end: 20030901
  3. YASMIN [Suspect]
     Route: 048
     Dates: start: 20070822, end: 20071001
  4. YASMIN [Suspect]
     Route: 048
     Dates: start: 20030818, end: 20030901

REACTIONS (1)
  - GALLBLADDER DISORDER [None]
